FAERS Safety Report 24358758 (Version 13)
Quarter: 2025Q4

REPORT INFORMATION
  Report Type: Report from Study
  Country: US (occurrence: US)
  Receive Date: 20240924
  Receipt Date: 20251020
  Transmission Date: 20260117
  Serious: Yes (Other)
  Sender: BOEHRINGER INGELHEIM
  Company Number: US-BoehringerIngelheim-2024-BI-024850

PATIENT
  Age: 71 Year
  Sex: Female

DRUGS (11)
  1. SPEVIGO [Suspect]
     Active Substance: SPESOLIMAB-SBZO
     Indication: Generalised pustular psoriasis
     Dates: start: 20240820, end: 20240820
  2. SPEVIGO [Suspect]
     Active Substance: SPESOLIMAB-SBZO
     Dosage: 6 SUBQ DOSES + 1 IV DOSES
     Dates: start: 20240424
  3. SPEVIGO [Suspect]
     Active Substance: SPESOLIMAB-SBZO
     Dates: start: 20250425
  4. Phenylepharine PO TID PRN [Concomitant]
     Indication: Product used for unknown indication
  5. SYNTHROID [Concomitant]
     Active Substance: LEVOTHYROXINE SODIUM
     Indication: Product used for unknown indication
  6. DULOXETINE [Concomitant]
     Active Substance: DULOXETINE
     Indication: Product used for unknown indication
  7. MONTELUKAST [Concomitant]
     Active Substance: MONTELUKAST
     Indication: Product used for unknown indication
  8. XANAX [Concomitant]
     Active Substance: ALPRAZOLAM
     Indication: Product used for unknown indication
  9. B12 [Concomitant]
     Indication: Product used for unknown indication
  10. VITAMINS [Concomitant]
     Active Substance: VITAMINS
     Indication: Product used for unknown indication
  11. MAGNESIUM CITRATE [Concomitant]
     Active Substance: MAGNESIUM CITRATE
     Indication: Product used for unknown indication

REACTIONS (36)
  - Generalised pustular psoriasis [Recovered/Resolved]
  - Excessive cerumen production [Not Recovered/Not Resolved]
  - Procedural headache [Recovered/Resolved]
  - Blood glucose increased [Recovered/Resolved]
  - Productive cough [Not Recovered/Not Resolved]
  - Infrequent bowel movements [Unknown]
  - Pain [Unknown]
  - Pustule [Not Recovered/Not Resolved]
  - Weight decreased [Unknown]
  - Hypobarism [Unknown]
  - Rash macular [Recovered/Resolved]
  - Muscle spasms [Unknown]
  - Pustule [Recovered/Resolved]
  - Fatigue [Not Recovered/Not Resolved]
  - Rash [Recovered/Resolved]
  - Ear pain [Recovering/Resolving]
  - Rash [Recovered/Resolved]
  - Nasopharyngitis [Unknown]
  - Pustule [Recovered/Resolved]
  - Solar lentigo [Unknown]
  - Apathy [Not Recovered/Not Resolved]
  - Asthenia [Not Recovered/Not Resolved]
  - Abnormal dreams [Unknown]
  - Vomiting [Unknown]
  - Stress [Unknown]
  - Back pain [Unknown]
  - Arthralgia [Unknown]
  - Off label use [Unknown]
  - Rosacea [Unknown]
  - Inflammation [Unknown]
  - Flatulence [Unknown]
  - Dyspepsia [Unknown]
  - Gastrointestinal disorder [Unknown]
  - Gastrointestinal motility disorder [Unknown]
  - Faeces hard [Unknown]
  - Faecal volume decreased [Unknown]

NARRATIVE: CASE EVENT DATE: 20240424
